FAERS Safety Report 5404615-3 (Version None)
Quarter: 2007Q3

REPORT INFORMATION
  Report Type: 
  Country: None (occurrence: None)
  Receive Date: 20070713
  Receipt Date: 20070501
  Transmission Date: 20080115
  Serious: Yes (Hospitalization)
  Sender: FDA-Public Use
  Company Number: US-JNJFOC-20060400674

PATIENT
  Age: 30 Year
  Sex: Female
  Weight: 97.977 kg

DRUGS (3)
  1. ORTHO EVRA [Suspect]
     Indication: MENORRHAGIA
     Dosage: 1 DOSE(S), 3 IN 4 WEEK
     Dates: start: 20041201, end: 20050618
  2. B 12 (CYANOCOBALAMIN) [Concomitant]
  3. MOTRIN [Concomitant]

REACTIONS (3)
  - DEEP VEIN THROMBOSIS [None]
  - OFF LABEL USE [None]
  - PULMONARY EMBOLISM [None]
